FAERS Safety Report 7212465-0 (Version None)
Quarter: 2011Q1

REPORT INFORMATION
  Report Type: 
  Country: None (occurrence: None)
  Receive Date: 20110106
  Receipt Date: 20110103
  Transmission Date: 20110831
  Serious: Yes (Hospitalization)
  Sender: FDA-Public Use
  Company Number: US-AMGEN-USASP2011000260

PATIENT

DRUGS (8)
  1. PREDNISONE [Concomitant]
  2. COUMADIN [Concomitant]
  3. CYCLOPHOSPHAMIDE [Concomitant]
  4. VINCRISTINE [Concomitant]
  5. NEULASTA [Suspect]
     Indication: NEUTROPENIA
     Dates: start: 20101220
  6. ADRIAMYCIN PFS [Concomitant]
  7. RITUXIMAB [Concomitant]
  8. NEUPOGEN [Suspect]
     Indication: NEUTROPENIA
     Dosage: UNK
     Dates: start: 20100808

REACTIONS (2)
  - NEUTROPENIA [None]
  - BLOOD PRESSURE DECREASED [None]
